FAERS Safety Report 7077862-5 (Version None)
Quarter: 2010Q4

REPORT INFORMATION
  Report Type: 
  Country: None (occurrence: None)
  Receive Date: 20101101
  Receipt Date: 20101027
  Transmission Date: 20110411
  Serious: Yes (Hospitalization)
  Sender: FDA-Public Use
  Company Number: FR-RB-013214-10

PATIENT
  Sex: Female
  Weight: 63 kg

DRUGS (1)
  1. SUBOXONE [Suspect]
     Indication: DEPENDENCE
     Route: 060
     Dates: start: 20100607, end: 20100710

REACTIONS (2)
  - PNEUMONIA [None]
  - STAPHYLOCOCCAL SEPSIS [None]
